FAERS Safety Report 8394765-4 (Version None)
Quarter: 2012Q2

REPORT INFORMATION
  Report Type: 
  Country: None (occurrence: None)
  Receive Date: 20120530
  Receipt Date: 20120517
  Transmission Date: 20120825
  Serious: Yes (Other)
  Sender: FDA-Public Use
  Company Number: US-ASTELLAS-2012US005008

PATIENT
  Sex: Female
  Weight: 84 kg

DRUGS (5)
  1. RESTORIL [Concomitant]
     Indication: PRODUCT USED FOR UNKNOWN INDICATION
     Dosage: 15 MG, UID/QD
     Route: 048
  2. METOPROLOL TARTRATE [Concomitant]
     Indication: PRODUCT USED FOR UNKNOWN INDICATION
     Dosage: 25 MG, UID/QD
     Route: 048
  3. ERLOTINIB HYDROCHLORIDE [Suspect]
     Indication: NON-SMALL CELL LUNG CANCER
     Dosage: 150 MG, UID/QD
     Route: 048
     Dates: start: 20111212
  4. LIPITOR [Concomitant]
     Indication: PRODUCT USED FOR UNKNOWN INDICATION
     Dosage: 40 MG, UID/QD
     Route: 048
  5. TEA TREE OIL [Concomitant]
     Indication: FURUNCLE
     Dosage: UNK
     Route: 061

REACTIONS (7)
  - ONYCHOMADESIS [None]
  - WEIGHT DECREASED [None]
  - FURUNCLE [None]
  - AGEUSIA [None]
  - AORTIC ANEURYSM [None]
  - PAIN [None]
  - CONJUNCTIVITIS [None]
